FAERS Safety Report 6745163-8 (Version None)
Quarter: 2010Q2

REPORT INFORMATION
  Report Type: 
  Country: None (occurrence: None)
  Receive Date: 20100526
  Receipt Date: 20100518
  Transmission Date: 20101027
  Serious: Yes (Other)
  Sender: FDA-Public Use
  Company Number: 2010SP015169

PATIENT
  Age: 50 Year
  Sex: Female

DRUGS (4)
  1. RIBAVIRIN [Suspect]
     Indication: HEPATITIS C
     Dosage: PO
     Route: 048
     Dates: start: 20090101
  2. RIBAVIRIN [Suspect]
     Indication: VASCULITIS
     Dosage: PO
     Route: 048
     Dates: start: 20090101
  3. PEGASYS [Suspect]
     Indication: HEPATITIS C
     Dates: start: 20090101
  4. PEGASYS [Suspect]
     Indication: VASCULITIS
     Dates: start: 20090101

REACTIONS (7)
  - ABASIA [None]
  - ARTHROPOD BITE [None]
  - CRYOGLOBULINAEMIA [None]
  - OEDEMA PERIPHERAL [None]
  - RASH [None]
  - SKIN EXFOLIATION [None]
  - VASCULAR RUPTURE [None]
